FAERS Safety Report 5718741-2 (Version None)
Quarter: 2008Q2

REPORT INFORMATION
  Report Type: 
  Country: None (occurrence: None)
  Receive Date: 20080423
  Receipt Date: 20080409
  Transmission Date: 20081010
  Serious: Yes (Hospitalization)
  Sender: FDA-Public Use
  Company Number: AMAN20080005

PATIENT
  Age: 66 Year
  Sex: Female

DRUGS (7)
  1. AMANTADINE HCL [Suspect]
     Dosage: 50 MG, 1 TABLET TID
  2. CARBIDOPA AND LEVODOPA [Suspect]
     Indication: PARKINSON'S DISEASE
     Dosage: 450 MG, DAILY, PER ORAL, 450 MG, 8 TABS DAILY, PER ORAL
     Route: 048
  3. ASCORBIC ACID-CALCIUM PANTOTHENATE [Suspect]
     Dosage: 1 GM, 1 GM AFTER MEALS, PER ORAL
     Route: 048
  4. DROXIDOPA (DOPS) [Suspect]
     Dosage: 300 MG, DAILY, PER ORAL
     Route: 048
  5. PRAMIPEXOLE DIHYDROCHLORIDE [Suspect]
     Dosage: 1.5 MG, TID
     Dates: start: 20071001
  6. SENNOSIDE A B (PURSENNID) [Suspect]
     Dosage: 36 MG, ONCE EVERY EVENING, PER ORAL
     Route: 048
  7. ZONISAMIDE (EXCEGRAN) [Suspect]
     Dosage: 100 MG, 1 TAB QAM AND QPM, PER ORAL
     Route: 048

REACTIONS (1)
  - ERYTHROMELALGIA [None]
